FAERS Safety Report 8525579 (Version 2)
Quarter: 2012Q4

REPORT INFORMATION
  Report Type: 
  Country: DE (occurrence: DE)
  Receive Date: 20120423
  Receipt Date: 20121126
  Transmission Date: 20130627
  Serious: Yes (Life-Threatening, Hospitalization)
  Sender: FDA-Public Use
  Company Number: DE-ELI_LILLY_AND_COMPANY-DE201204002769

PATIENT
  Age: 39 Year
  Sex: Female

DRUGS (4)
  1. CYMBALTA [Suspect]
     Dosage: UNK, unknown
  2. IBUPROFEN [Concomitant]
     Dosage: UNK, unknown
  3. TRAMADOL [Concomitant]
     Dosage: UNK, unknown
  4. SALICYLATE SODIUM [Concomitant]

REACTIONS (6)
  - Subarachnoid haemorrhage [Recovered/Resolved]
  - Pupils unequal [Recovered/Resolved]
  - Areflexia [Recovered/Resolved]
  - Somnolence [Recovered/Resolved]
  - Hypertension [Recovered/Resolved]
  - Tachycardia [Recovered/Resolved]
